FAERS Safety Report 24819032 (Version 1)
Quarter: 2025Q1

REPORT INFORMATION
  Report Type: Spontaneous
  Country: US (occurrence: US)
  Receive Date: 20250108
  Receipt Date: 20250108
  Transmission Date: 20250408
  Serious: Yes (Hospitalization)
  Sender: MYLAN
  Company Number: US-MYLANLABS-2024M1117726

PATIENT
  Age: 55 Year
  Sex: Male

DRUGS (1)
  1. MESALAMINE [Suspect]
     Active Substance: MESALAMINE
     Indication: Colitis microscopic
     Route: 065

REACTIONS (6)
  - Drug intolerance [Unknown]
  - Pyrexia [Recovered/Resolved]
  - Malaise [Unknown]
  - Headache [Unknown]
  - Myalgia [Unknown]
  - Decreased appetite [Unknown]
